FAERS Safety Report 9682013 (Version 3)
Quarter: 2014Q2

REPORT INFORMATION
  Report Type: Spontaneous
  Country: US (occurrence: US)
  Receive Date: 20131111
  Receipt Date: 20140403
  Transmission Date: 20141212
  Serious: Yes (Hospitalization, Other)
  Sender: FDA-Public Use
  Company Number: US-GILEAD-2013-0087243

PATIENT
  Age: 49 Year
  Sex: Female

DRUGS (1)
  1. LETAIRIS [Suspect]
     Indication: PRODUCT USED FOR UNKNOWN INDICATION
     Dosage: 10 MG, UNK
     Route: 048
     Dates: start: 20110407

REACTIONS (10)
  - Pneumonia [Unknown]
  - Loss of consciousness [Unknown]
  - Influenza [Unknown]
  - Malaise [Unknown]
  - Heart valve incompetence [Unknown]
  - Cardiac disorder [Unknown]
  - Abasia [Unknown]
  - Sinus disorder [Unknown]
  - Rhinorrhoea [Unknown]
  - Dyspnoea [Unknown]
